FAERS Safety Report 18760892 (Version 3)
Quarter: 2021Q1

REPORT INFORMATION
  Report Type: Spontaneous
  Country: US (occurrence: US)
  Receive Date: 20210119
  Receipt Date: 20210128
  Transmission Date: 20210419
  Serious: Yes (Other)
  Sender: FDA-Public Use
  Company Number: US-PFIZER INC-2021031293

PATIENT
  Age: 43 Year
  Sex: Female
  Weight: 86 kg

DRUGS (2)
  1. EPINEPHRINE. [Suspect]
     Active Substance: EPINEPHRINE
     Indication: DYSPNOEA
  2. EPINEPHRINE. [Suspect]
     Active Substance: EPINEPHRINE
     Indication: SPEECH DISORDER
     Dosage: UNK

REACTIONS (3)
  - Heart rate increased [Recovering/Resolving]
  - Therapeutic product effect incomplete [Unknown]
  - Nervousness [Recovering/Resolving]
